FAERS Safety Report 10268904 (Version 2)
Quarter: 2014Q2

REPORT INFORMATION
  Report Type: Report from Study
  Country: US (occurrence: US)
  Receive Date: 20140630
  Receipt Date: 20140630
  Transmission Date: 20141212
  Serious: Yes (Death, Hospitalization)
  Sender: FDA-Public Use
  Company Number: US-TAKEDA-2007-02875

PATIENT
  Age: 80 Year
  Sex: Male
  Weight: 80.4 kg

DRUGS (6)
  1. VELCADE [Suspect]
     Indication: MANTLE CELL LYMPHOMA
     Dosage: 1.3 MG/M2, ON DAYS 1 AND 4 OF CYCLES 1-6
     Route: 042
     Dates: start: 20070410
  2. CYCLOPHOSPHAMIDE [Suspect]
     Indication: MANTLE CELL LYMPHOMA
     Dosage: 750 MG/M^2 ON DAY 1 OF CYCLES 1-6
     Route: 042
     Dates: start: 20070410
  3. DOXORUBICIN [Suspect]
     Indication: MANTLE CELL LYMPHOMA
     Dosage: 50 MG/M2, ON DAY 1 OF CYCLES 1-6
     Route: 042
     Dates: start: 20070410
  4. PREDNISONE [Suspect]
     Indication: MANTLE CELL LYMPHOMA
     Dosage: 100 MG, ON DAYS 1-5 OF CYCLES 1-6
     Route: 048
     Dates: start: 20070410
  5. RITUXIMAB [Suspect]
     Indication: MANTLE CELL LYMPHOMA
     Dosage: 375 MG/M2, ON DAYS 1-5 OF CYCLES 1-6
     Route: 042
     Dates: start: 20070410
  6. VINCRISTINE [Suspect]
     Indication: MANTLE CELL LYMPHOMA
     Dosage: 1.4 MG/M2, ON DAYS 1-5 OF CYCLES 1-6
     Route: 042
     Dates: start: 20070410

REACTIONS (1)
  - Sudden death [Fatal]
